FAERS Safety Report 18568612 (Version 1)
Quarter: 2020Q4

REPORT INFORMATION
  Report Type: Report from Study
  Country: CN (occurrence: CN)
  Receive Date: 20201202
  Receipt Date: 20201202
  Transmission Date: 20210114
  Serious: Yes (Death, Hospitalization, Other)
  Sender: FDA-Public Use
  Company Number: CN-SUN PHARMACEUTICAL INDUSTRIES LTD-2020R1-269428

PATIENT
  Age: 65 Year
  Sex: Female

DRUGS (4)
  1. METHOTREXATE. [Suspect]
     Active Substance: METHOTREXATE
     Dosage: 10 MILLIGRAM, 2/WEEK
     Route: 048
  2. LEFLUNOMIDE. [Suspect]
     Active Substance: LEFLUNOMIDE
     Dosage: 20 MILLIGRAM, BID
     Route: 048
  3. METHOTREXATE. [Suspect]
     Active Substance: METHOTREXATE
     Indication: RHEUMATOID ARTHRITIS
     Dosage: UNK
     Route: 065
  4. LEFLUNOMIDE. [Suspect]
     Active Substance: LEFLUNOMIDE
     Indication: RHEUMATOID ARTHRITIS
     Dosage: UNK
     Route: 065

REACTIONS (10)
  - Skin erosion [Fatal]
  - Myelosuppression [Fatal]
  - Condition aggravated [Unknown]
  - Platelet count increased [Unknown]
  - Congenital joint malformation [Unknown]
  - Oral pain [Unknown]
  - Dyspnoea exertional [Unknown]
  - Mucosal disorder [Fatal]
  - Intentional product misuse [Unknown]
  - Stomatitis [Unknown]
